FAERS Safety Report 9603720 (Version 6)
Quarter: 2015Q4

REPORT INFORMATION
  Report Type: Spontaneous
  Country: US (occurrence: US)
  Receive Date: 20131007
  Receipt Date: 20151203
  Transmission Date: 20160305
  Serious: Yes (Life-Threatening, Other)
  Sender: FDA-Public Use
  Company Number: US-ABBVIE-13P-163-1154191-00

PATIENT
  Sex: Male

DRUGS (7)
  1. PHENOBARBITAL. [Concomitant]
     Active Substance: PHENOBARBITAL
     Indication: PRODUCT USED FOR UNKNOWN INDICATION
  2. NIASPAN [Concomitant]
     Active Substance: NIACIN
     Indication: PRODUCT USED FOR UNKNOWN INDICATION
     Route: 065
     Dates: start: 200207
  3. DEPAKOTE [Suspect]
     Active Substance: DIVALPROEX SODIUM
     Indication: PRODUCT USED FOR UNKNOWN INDICATION
     Route: 065
     Dates: start: 199405, end: 201306
  4. TRICOR [Suspect]
     Active Substance: FENOFIBRATE
     Indication: PRODUCT USED FOR UNKNOWN INDICATION
     Route: 065
     Dates: start: 200611
  5. DEPAKENE [Suspect]
     Active Substance: VALPROIC ACID
     Indication: PRODUCT USED FOR UNKNOWN INDICATION
     Route: 065
     Dates: start: 1977, end: 199405
  6. DEPAKENE [Suspect]
     Active Substance: VALPROIC ACID
     Route: 065
  7. TRILIPIX [Suspect]
     Active Substance: FENOFIBRIC ACID
     Indication: PRODUCT USED FOR UNKNOWN INDICATION
     Route: 065
     Dates: start: 201306

REACTIONS (43)
  - Drug effect incomplete [Unknown]
  - Personality change [Unknown]
  - Hearing impaired [Unknown]
  - Hypertriglyceridaemia [Unknown]
  - Coronary artery disease [Unknown]
  - Hallucination [Unknown]
  - Acute myocardial infarction [Unknown]
  - Glucose tolerance impaired [Unknown]
  - Non-alcoholic steatohepatitis [Unknown]
  - Mental disorder [Unknown]
  - Hyperammonaemia [Unknown]
  - High density lipoprotein decreased [Unknown]
  - Injury [Unknown]
  - Anxiety [Unknown]
  - Pain [Unknown]
  - Hyperammonaemia [Unknown]
  - Fatigue [Unknown]
  - Cardiovascular disorder [Unknown]
  - Type 2 diabetes mellitus [Unknown]
  - Testicular atrophy [Unknown]
  - Multiple injuries [Unknown]
  - Hypertension [Recovering/Resolving]
  - Cerebrovascular accident [Unknown]
  - Hypertension [Unknown]
  - Surgery [Unknown]
  - Hormone level abnormal [Unknown]
  - Nerve injury [Unknown]
  - Dyslipidaemia [Recovering/Resolving]
  - Testicular disorder [Unknown]
  - Blood glucose abnormal [Unknown]
  - Pancreatitis [Unknown]
  - Sleep apnoea syndrome [Unknown]
  - Metabolic syndrome [Unknown]
  - Coronary artery disease [Unknown]
  - Reproductive tract disorder [Unknown]
  - Obesity [Unknown]
  - Mobility decreased [Unknown]
  - Sexual dysfunction [Unknown]
  - Tinnitus [Unknown]
  - Coronary artery occlusion [Unknown]
  - Erectile dysfunction [Unknown]
  - Spermatozoa abnormal [Unknown]
  - Cytogenetic abnormality [Unknown]

NARRATIVE: CASE EVENT DATE: 1979
